FAERS Safety Report 7020560-4 (Version None)
Quarter: 2010Q3

REPORT INFORMATION
  Report Type: 
  Country: None (occurrence: None)
  Receive Date: 20100929
  Receipt Date: 20100927
  Transmission Date: 20110219
  Serious: Yes (Other)
  Sender: FDA-Public Use
  Company Number: US-GENZYME-THYM-1001857

PATIENT
  Age: 45 Year
  Sex: Male

DRUGS (4)
  1. THYMOGLOBULIN [Suspect]
     Indication: PROPHYLAXIS AGAINST TRANSPLANT REJECTION
     Dosage: UNK
     Route: 042
     Dates: start: 20060101
  2. TACROLIMUS [Concomitant]
     Indication: IMMUNOSUPPRESSION
     Dosage: UNK
     Route: 065
     Dates: start: 20060101
  3. MYCOPHENOLATE MOFETIL [Concomitant]
     Indication: IMMUNOSUPPRESSION
     Dosage: UNK
     Route: 065
     Dates: start: 20060101
  4. MYCOPHENOLIC ACID [Concomitant]
     Indication: IMMUNOSUPPRESSION
     Route: 065

REACTIONS (2)
  - MALACOPLAKIA GASTROINTESTINAL [None]
  - TRANSPLANT REJECTION [None]
